FAERS Safety Report 8697761 (Version 2)
Quarter: 2012Q4

REPORT INFORMATION
  Report Type: 
  Country: US (occurrence: US)
  Receive Date: 20120801
  Receipt Date: 20120919
  Transmission Date: 20130627
  Serious: No
  Sender: FDA-Public Use
  Company Number: US-ASTRAZENECA-2012SE50002

PATIENT
  Age: 81 Year
  Sex: Female

DRUGS (3)
  1. NEXIUM [Suspect]
     Route: 048
  2. OMEPRAZOLE [Suspect]
     Route: 048
  3. SYMBICORT PMDI [Suspect]
     Route: 055

REACTIONS (5)
  - Chronic obstructive pulmonary disease [Unknown]
  - Back pain [Unknown]
  - Neck pain [Unknown]
  - Neuropathy peripheral [Unknown]
  - Drug ineffective [Unknown]
